FAERS Safety Report 12932878 (Version 2)
Quarter: 2016Q4

REPORT INFORMATION
  Report Type: Spontaneous
  Country: BR (occurrence: BR)
  Receive Date: 20161111
  Receipt Date: 20161129
  Transmission Date: 20170207
  Serious: Yes (Death, Hospitalization, Other)
  Sender: FDA-Public Use
  Company Number: BR-AMGEN-BRASP2016158500

PATIENT
  Age: 48 Year
  Sex: Female

DRUGS (1)
  1. ENBREL [Suspect]
     Active Substance: ETANERCEPT
     Indication: PRODUCT USED FOR UNKNOWN INDICATION
     Dosage: 50 MG, UNK
     Route: 065
     Dates: start: 201602

REACTIONS (6)
  - Decreased immune responsiveness [Unknown]
  - Tuberculosis [Unknown]
  - Mouth injury [Unknown]
  - Pneumonia [Fatal]
  - Aptyalism [Unknown]
  - Lacrimation decreased [Unknown]
